FAERS Safety Report 4947936-0 (Version None)
Quarter: 2006Q1

REPORT INFORMATION
  Report Type: 
  Country: None (occurrence: None)
  Receive Date: 20060313
  Receipt Date: 20060313
  Transmission Date: 20060701
  Serious: Yes (Hospitalization)
  Sender: FDA-Public Use
  Company Number: None

PATIENT
  Sex: Female

DRUGS (1)
  1. MELOXICAM [Suspect]
     Dosage: 15MG QDAY ORAL
     Route: 048
     Dates: start: 20051207, end: 20051210

REACTIONS (1)
  - PANCREATITIS [None]
